FAERS Safety Report 13005535 (Version 2)
Quarter: 2017Q4

REPORT INFORMATION
  Report Type: Spontaneous
  Country: US (occurrence: US)
  Receive Date: 20161207
  Receipt Date: 20171121
  Transmission Date: 20180320
  Serious: No
  Sender: FDA-Public Use
  Company Number: US-JNJFOC-20161105526

PATIENT
  Age: 64 Year
  Sex: Female
  Weight: 104.33 kg

DRUGS (4)
  1. SIMPONI [Suspect]
     Active Substance: GOLIMUMAB
     Indication: OCULAR SARCOIDOSIS
     Route: 058
     Dates: start: 20160129
  2. PREDNISONE. [Concomitant]
     Active Substance: PREDNISONE
     Route: 065
  3. SIMPONI [Suspect]
     Active Substance: GOLIMUMAB
     Indication: OCULAR SARCOIDOSIS
     Route: 058
     Dates: start: 20161107
  4. SIMPONI [Suspect]
     Active Substance: GOLIMUMAB
     Indication: OCULAR SARCOIDOSIS
     Route: 058
     Dates: start: 201602

REACTIONS (4)
  - Off label use [Unknown]
  - Inappropriate schedule of drug administration [Unknown]
  - Product use in unapproved indication [Unknown]
  - Device malfunction [Unknown]

NARRATIVE: CASE EVENT DATE: 20160129
